FAERS Safety Report 19015800 (Version 1)
Quarter: 2021Q1

REPORT INFORMATION
  Report Type: Spontaneous
  Country: US (occurrence: US)
  Receive Date: 20210316
  Receipt Date: 20210316
  Transmission Date: 20210420
  Serious: No
  Sender: FDA-Public Use
  Company Number: US-TAKEDA-2021TUS014361

PATIENT

DRUGS (1)
  1. MOTEGRITY [Suspect]
     Active Substance: PRUCALOPRIDE SUCCINATE
     Indication: GASTROINTESTINAL MOTILITY DISORDER
     Route: 065

REACTIONS (3)
  - Flatulence [Unknown]
  - Faeces hard [Unknown]
  - Dyschezia [Unknown]
